FAERS Safety Report 7307526-1 (Version None)
Quarter: 2011Q1

REPORT INFORMATION
  Report Type: 
  Country: None (occurrence: None)
  Receive Date: 20110211
  Receipt Date: 20110127
  Transmission Date: 20110831
  Serious: Yes (Hospitalization)
  Sender: FDA-Public Use
  Company Number: 026902

PATIENT
  Age: 28 Year
  Sex: Male

DRUGS (3)
  1. LEVETIRACETAM [Suspect]
     Indication: CONVULSION
     Dosage: (500 MG TID), (DOSE REDUCED TO UNKNOWN DOSE)
     Dates: start: 20080101
  2. CARBAMAZEPINE [Concomitant]
  3. FLUOXETINE [Concomitant]

REACTIONS (12)
  - ENERGY INCREASED [None]
  - PANIC ATTACK [None]
  - CONVULSION [None]
  - DEPRESSION [None]
  - PSYCHIATRIC SYMPTOM [None]
  - SUICIDE ATTEMPT [None]
  - AGGRESSION [None]
  - INSOMNIA [None]
  - SUICIDAL IDEATION [None]
  - IRRITABILITY [None]
  - ANGER [None]
  - MOOD SWINGS [None]
